FAERS Safety Report 8136875-2 (Version None)
Quarter: 2012Q1

REPORT INFORMATION
  Report Type: 
  Country: None (occurrence: None)
  Receive Date: 20120214
  Receipt Date: 20120207
  Transmission Date: 20120608
  Serious: Yes (Death)
  Sender: FDA-Public Use
  Company Number: US-CELGENEUS-163-21880-12020872

PATIENT
  Age: 84 Year
  Sex: Male

DRUGS (7)
  1. AMLODIPINE [Concomitant]
     Route: 065
  2. LEVOTHYROXINE SODIUM [Concomitant]
     Route: 065
  3. LORAZEPAM [Concomitant]
     Route: 065
  4. REVLIMID [Suspect]
     Dosage: 10 MILLIGRAM
     Route: 048
     Dates: start: 20110901
  5. FILGRASTIM [Concomitant]
     Route: 065
  6. FUROSEMIDE [Concomitant]
     Route: 065
  7. MORPHINE [Concomitant]
     Route: 065

REACTIONS (1)
  - DEATH [None]
